FAERS Safety Report 5094029-0 (Version None)
Quarter: 2006Q3

REPORT INFORMATION
  Report Type: 
  Country: None (occurrence: None)
  Receive Date: 20060829
  Receipt Date: 20060829
  Transmission Date: 20061208
  Serious: Yes (Other)
  Sender: FDA-Public Use
  Company Number: None

PATIENT
  Sex: Male
  Weight: 69.8539 kg

DRUGS (2)
  1. GEODON [Suspect]
     Indication: PSYCHOTIC DISORDER
     Dosage: 20MG PO QAM
     Route: 048
     Dates: start: 20060810, end: 20060824
  2. GEODON [Suspect]
     Dosage: 60 MG PO QHS
     Route: 048

REACTIONS (1)
  - SPONTANEOUS PENILE ERECTION [None]
